FAERS Safety Report 21902737 (Version 1)
Quarter: 2023Q1

REPORT INFORMATION
  Report Type: Spontaneous
  Country: US (occurrence: None)
  Receive Date: 20230123
  Receipt Date: 20230123
  Transmission Date: 20230418
  Serious: No
  Sender: FDA-Public Use
  Company Number: None

PATIENT
  Age: 65 Year
  Sex: Female
  Weight: 67.99 kg

DRUGS (6)
  1. IBRANCE [Suspect]
     Active Substance: PALBOCICLIB
     Indication: Breast cancer female
     Dosage: OTHER FREQUENCY : 21D ON 7D OFF;?
     Route: 048
     Dates: start: 202204
  2. AGARICUS [Concomitant]
  3. CIRCUMIN [Concomitant]
  4. ESSIAC TONIC [Concomitant]
  5. GRAVOLIA [Concomitant]
  6. IP6 GOLD IMMUNE SYSTEM SUPPORT [Concomitant]

REACTIONS (2)
  - Breast cancer female [None]
  - Breast cancer [None]
